FAERS Safety Report 4771520-5 (Version None)
Quarter: 2005Q3

REPORT INFORMATION
  Report Type: 
  Country: None (occurrence: None)
  Receive Date: 20050914
  Receipt Date: 20050914
  Transmission Date: 20060218
  Serious: No
  Sender: FDA-Public Use
  Company Number: None

PATIENT
  Age: 3 Year
  Sex: Female
  Weight: 20.2 kg

DRUGS (1)
  1. RITUXIMAB [Suspect]
     Indication: LYMPHOPROLIFERATIVE DISORDER
     Dosage: RITUXIMAB VIA INFUSION (281 MG/M2)
     Dates: start: 20050701

REACTIONS (2)
  - BRADYCARDIA [None]
  - INFUSION RELATED REACTION [None]
